FAERS Safety Report 7967829-4 (Version None)
Quarter: 2011Q4

REPORT INFORMATION
  Report Type: 
  Country: None (occurrence: None)
  Receive Date: 20111207
  Receipt Date: 20111125
  Transmission Date: 20120403
  Serious: Yes (Other)
  Sender: FDA-Public Use
  Company Number: GER/UKI/11/0022104

PATIENT
  Age: 66 Year
  Sex: Female
  Weight: 59 kg

DRUGS (3)
  1. PARACETAMOL (PRACATEMOL) [Concomitant]
  2. AMLODIPINE [Concomitant]
  3. NIZATIDINE [Suspect]
     Indication: DYSPEPSIA
     Dosage: 300 MG, 1 IN 1 D, ORAL
     Route: 048

REACTIONS (4)
  - FATIGUE [None]
  - PALPITATIONS [None]
  - DYSPNOEA [None]
  - ARRHYTHMIA [None]
